FAERS Safety Report 7910298-0 (Version None)
Quarter: 2011Q4

REPORT INFORMATION
  Report Type: 
  Country: None (occurrence: None)
  Receive Date: 20111111
  Receipt Date: 20111027
  Transmission Date: 20120403
  Serious: Yes (Life-Threatening, Hospitalization)
  Sender: FDA-Public Use
  Company Number: US-ROCHE-1007918

PATIENT
  Age: 72 Year
  Sex: Female
  Weight: 80.91 kg

DRUGS (4)
  1. WARFARIN SODIUM [Suspect]
     Indication: PRODUCT USED FOR UNKNOWN INDICATION
  2. AVASTIN [Suspect]
     Indication: ENDOMETRIAL CANCER
     Route: 042
     Dates: start: 20110624
  3. CARBOPLATIN [Suspect]
     Indication: ENDOMETRIAL CANCER
     Route: 042
     Dates: start: 20110624
  4. IXABEPILONE [Suspect]
     Indication: ENDOMETRIAL CANCER
     Route: 042
     Dates: start: 20110624

REACTIONS (11)
  - HYPOCALCAEMIA [None]
  - WHITE BLOOD CELL COUNT DECREASED [None]
  - ANAEMIA [None]
  - INTERNATIONAL NORMALISED RATIO INCREASED [None]
  - HYPOKALAEMIA [None]
  - SOFT TISSUE NECROSIS [None]
  - HYPOALBUMINAEMIA [None]
  - HYPOMAGNESAEMIA [None]
  - NEUTROPHIL COUNT DECREASED [None]
  - HYPOPHOSPHATAEMIA [None]
  - HYPONATRAEMIA [None]
